FAERS Safety Report 20072260 (Version 1)
Quarter: 2021Q4

REPORT INFORMATION
  Report Type: Spontaneous
  Country: US (occurrence: US)
  Receive Date: 20211116
  Receipt Date: 20211116
  Transmission Date: 20220303
  Serious: Yes (Other)
  Sender: FDA-Public Use
  Company Number: US-JNJFOC-20211107661

PATIENT

DRUGS (1)
  1. BENADRYL ALLERGY ULTRATAB [Suspect]
     Active Substance: DIPHENHYDRAMINE HYDROCHLORIDE
     Indication: Product used for unknown indication
     Dosage: TOOK 2 THEN IT DIDN^T WORK AFTER A WHILE SO TOOK 3RD.
     Route: 065

REACTIONS (3)
  - Loss of consciousness [Recovered/Resolved]
  - Overdose [Unknown]
  - Drug ineffective [Unknown]
